FAERS Safety Report 17099836 (Version 6)
Quarter: 2020Q1

REPORT INFORMATION
  Report Type: Spontaneous
  Country: US (occurrence: US)
  Receive Date: 20191202
  Receipt Date: 20200115
  Transmission Date: 20200409
  Serious: Yes (Other)
  Sender: FDA-Public Use
  Company Number: US-PFIZER INC-2019516450

PATIENT
  Age: 88 Year
  Sex: Female

DRUGS (1)
  1. CELEBREX [Suspect]
     Active Substance: CELECOXIB
     Indication: SKIN ULCER
     Dosage: 100 MG, 1X/DAY
     Route: 048

REACTIONS (6)
  - Off label use [Unknown]
  - Arthropathy [Not Recovered/Not Resolved]
  - Intentional product use issue [Unknown]
  - Hypoacusis [Unknown]
  - Cerebral palsy [Unknown]
  - Product use in unapproved indication [Unknown]
